FAERS Safety Report 16971129 (Version 1)
Quarter: 2019Q4

REPORT INFORMATION
  Report Type: Spontaneous
  Country: US (occurrence: US)
  Receive Date: 20191028
  Receipt Date: 20191028
  Transmission Date: 20200122
  Serious: Yes (Hospitalization, Other)
  Sender: FDA-Public Use
  Company Number: None

PATIENT
  Age: 64 Year
  Weight: 95.4 kg

DRUGS (1)
  1. SUPREP BOWEL PREP [Suspect]
     Active Substance: MAGNESIUM SULFATE\POTASSIUM SULFATE\SODIUM SULFATE

REACTIONS (8)
  - Diarrhoea [None]
  - Anaemia [None]
  - Fatigue [None]
  - Weight decreased [None]
  - Colitis ulcerative [None]
  - Haematochezia [None]
  - Leukocytosis [None]
  - Abdominal pain [None]

NARRATIVE: CASE EVENT DATE: 20190701
